FAERS Safety Report 20727625 (Version 1)
Quarter: 2022Q2

REPORT INFORMATION
  Report Type: Spontaneous
  Country: US (occurrence: None)
  Receive Date: 20220419
  Receipt Date: 20220419
  Transmission Date: 20220721
  Serious: No
  Sender: FDA-Public Use
  Company Number: US-ROCHE-2965680

PATIENT
  Sex: Female

DRUGS (2)
  1. AVASTIN [Suspect]
     Active Substance: BEVACIZUMAB
     Indication: Product used for unknown indication
     Route: 065
  2. LONSURF [Suspect]
     Active Substance: TIPIRACIL HYDROCHLORIDE\TRIFLURIDINE
     Indication: Product used for unknown indication
     Route: 065

REACTIONS (13)
  - Rash macular [Unknown]
  - Headache [Unknown]
  - Rash pruritic [Unknown]
  - Dyspnoea [Unknown]
  - Myalgia [Unknown]
  - Arthralgia [Unknown]
  - Rash [Unknown]
  - Nausea [Unknown]
  - Muscle spasms [Unknown]
  - Tongue disorder [Unknown]
  - Urticaria [Unknown]
  - Haemorrhoidal haemorrhage [Unknown]
  - Inappropriate schedule of product administration [Unknown]
